FAERS Safety Report 7745870-4 (Version None)
Quarter: 2011Q3

REPORT INFORMATION
  Report Type: 
  Country: None (occurrence: None)
  Receive Date: 20110913
  Receipt Date: 20110902
  Transmission Date: 20111222
  Serious: Yes (Hospitalization)
  Sender: FDA-Public Use
  Company Number: FR-JNJFOC-20110902455

PATIENT
  Age: 72 Year
  Sex: Female

DRUGS (6)
  1. PARKINANE LP [Concomitant]
     Route: 048
     Dates: end: 20100925
  2. OXAZEPAM [Concomitant]
     Route: 048
  3. CERIS [Concomitant]
     Route: 048
  4. ABILIFY [Suspect]
     Indication: PRODUCT USED FOR UNKNOWN INDICATION
     Route: 048
     Dates: end: 20110301
  5. MIRTAZAPINE [Concomitant]
     Route: 048
  6. HALDOL [Suspect]
     Indication: PRODUCT USED FOR UNKNOWN INDICATION
     Route: 048
     Dates: start: 20100925, end: 20101001

REACTIONS (4)
  - LUNG DISORDER [None]
  - DYSPHAGIA [None]
  - RESPIRATORY DISTRESS [None]
  - EXTRAPYRAMIDAL DISORDER [None]
